FAERS Safety Report 8189186-3 (Version None)
Quarter: 2012Q1

REPORT INFORMATION
  Report Type: 
  Country: None (occurrence: None)
  Receive Date: 20120306
  Receipt Date: 20120306
  Transmission Date: 20120608
  Serious: No
  Sender: FDA-Public Use
  Company Number: None

PATIENT
  Sex: Male

DRUGS (1)
  1. TRILEPTAL [Suspect]

REACTIONS (4)
  - PRODUCT SUBSTITUTION ISSUE [None]
  - AGGRESSION [None]
  - FALL [None]
  - SUICIDAL BEHAVIOUR [None]
